FAERS Safety Report 11499733 (Version 1)
Quarter: 2015Q3

REPORT INFORMATION
  Report Type: Spontaneous
  Country: CA (occurrence: CA)
  Receive Date: 20150914
  Receipt Date: 20150914
  Transmission Date: 20151125
  Serious: Yes (Other)
  Sender: FDA-Public Use
  Company Number: CA-HOSPIRA-3006267

PATIENT
  Age: 73 Year
  Sex: Female

DRUGS (4)
  1. HCQ [Suspect]
     Active Substance: HYDROXYCHLOROQUINE SULFATE
     Indication: RHEUMATOID ARTHRITIS
  2. HUMIRA [Suspect]
     Active Substance: ADALIMUMAB
     Indication: RHEUMATOID ARTHRITIS
  3. METHOTREXATE [Suspect]
     Active Substance: METHOTREXATE
     Indication: RHEUMATOID ARTHRITIS
  4. SIMPONI [Suspect]
     Active Substance: GOLIMUMAB
     Indication: RHEUMATOID ARTHRITIS

REACTIONS (6)
  - Guillain-Barre syndrome [Unknown]
  - Cystitis [Unknown]
  - Walking aid user [Unknown]
  - Drug ineffective [Unknown]
  - Micturition disorder [Unknown]
  - Alopecia [Unknown]

NARRATIVE: CASE EVENT DATE: 201501
